FAERS Safety Report 20382572 (Version 2)
Quarter: 2023Q4

REPORT INFORMATION
  Report Type: Spontaneous
  Country: US (occurrence: US)
  Receive Date: 20220127
  Receipt Date: 20231122
  Transmission Date: 20240110
  Serious: Yes (Other)
  Sender: FDA-Public Use
  Company Number: US-PIRAMAL PHARMA LIMITED-2021-PEL-000731

PATIENT

DRUGS (3)
  1. GABLOFEN [Suspect]
     Active Substance: BACLOFEN
     Indication: Product used for unknown indication
     Dosage: 100 MICROGRAM PER DAY
     Route: 037
  2. VALIUM [Concomitant]
     Active Substance: DIAZEPAM
     Indication: Sedation
     Dosage: UNK
     Route: 065
  3. BACLOFEN [Concomitant]
     Active Substance: BACLOFEN
     Indication: Sedation
     Dosage: UNK
     Route: 065

REACTIONS (11)
  - Withdrawal syndrome [Recovered/Resolved]
  - Overdose [Recovered/Resolved]
  - Underdose [Recovered/Resolved]
  - Scratch [Recovered/Resolved]
  - Hypersomnia [Recovered/Resolved]
  - Agitation [Recovered/Resolved]
  - Pruritus [Recovered/Resolved]
  - Hypertonia [Recovered/Resolved]
  - Hypotonia [Recovered/Resolved]
  - Speech disorder [Recovered/Resolved]
  - Urinary retention [Recovered/Resolved]

NARRATIVE: CASE EVENT DATE: 20210514
